FAERS Safety Report 21248566 (Version 1)
Quarter: 2022Q3

REPORT INFORMATION
  Report Type: Spontaneous
  Country: US (occurrence: US)
  Receive Date: 20220824
  Receipt Date: 20220824
  Transmission Date: 20221027
  Serious: Yes (Other)
  Sender: FDA-Public Use
  Company Number: US-PFIZER INC-PV202200048820

PATIENT
  Age: 61 Year
  Sex: Female
  Weight: 80.726 kg

DRUGS (2)
  1. TOVIAZ [Suspect]
     Active Substance: FESOTERODINE FUMARATE
     Indication: Urge incontinence
     Dosage: 8 MG, DAILY
     Route: 048
     Dates: end: 20180709
  2. TOVIAZ [Suspect]
     Active Substance: FESOTERODINE FUMARATE
     Dosage: 4 MG, DAILY
     Route: 048

REACTIONS (12)
  - Urinary retention [Unknown]
  - Hydronephrosis [Unknown]
  - Nephrolithiasis [Unknown]
  - Ureterolithiasis [Unknown]
  - Accident [Unknown]
  - Urge incontinence [Unknown]
  - Nocturia [Unknown]
  - Urinary tract infection [Unknown]
  - Flank pain [Unknown]
  - Blood urine present [Unknown]
  - Back pain [Unknown]
  - Groin pain [Unknown]

NARRATIVE: CASE EVENT DATE: 20130216
